FAERS Safety Report 4969949-5 (Version None)
Quarter: 2006Q1

REPORT INFORMATION
  Report Type: 
  Country: None (occurrence: None)
  Receive Date: 20060202
  Receipt Date: 20051008
  Transmission Date: 20060701
  Serious: Yes (Other)
  Sender: FDA-Public Use
  Company Number: PHEH2005US11436

PATIENT
  Sex: 0

DRUGS (1)
  1. RITALIN LA [Suspect]

REACTIONS (1)
  - HALLUCINATION, VISUAL [None]
